FAERS Safety Report 15936441 (Version 1)
Quarter: 2019Q1

REPORT INFORMATION
  Report Type: Spontaneous
  Country: US (occurrence: US)
  Receive Date: 20190207
  Receipt Date: 20190207
  Transmission Date: 20190417
  Serious: Yes (Disabling)
  Sender: FDA-Public Use
  Company Number: None

PATIENT
  Age: 56 Year
  Sex: Female
  Weight: 50.85 kg

DRUGS (2)
  1. CIPROFLOXACIN. [Suspect]
     Active Substance: CIPROFLOXACIN
     Indication: DIVERTICULITIS
     Dosage: ?          QUANTITY:1 TABLET(S);?
     Route: 048
     Dates: start: 20181211, end: 20181213
  2. METRONIDAZOLE. [Suspect]
     Active Substance: METRONIDAZOLE
     Indication: DIVERTICULITIS
     Dosage: ?          QUANTITY:1 TABLET(S);?
     Route: 048
     Dates: start: 20181211, end: 20181213

REACTIONS (10)
  - Muscular weakness [None]
  - Arthralgia [None]
  - Hypoaesthesia [None]
  - Ear discomfort [None]
  - Dizziness [None]
  - Head discomfort [None]
  - Tachycardia [None]
  - Anxiety [None]
  - Tendon pain [None]
  - Deafness [None]

NARRATIVE: CASE EVENT DATE: 20181213
